FAERS Safety Report 5986629-8 (Version None)
Quarter: 2008Q4

REPORT INFORMATION
  Report Type: 
  Country: None (occurrence: None)
  Receive Date: 20081209
  Receipt Date: 20081203
  Transmission Date: 20090506
  Serious: Yes (Death, Hospitalization, Other)
  Sender: FDA-Public Use
  Company Number: US-BRISTOL-MYERS SQUIBB COMPANY-14429187

PATIENT
  Age: 83 Year
  Sex: Male
  Weight: 77 kg

DRUGS (3)
  1. IXEMPRA KIT [Suspect]
     Indication: DIFFUSE LARGE B-CELL LYMPHOMA
     Dosage: START DATE: 02-OCT-2008: 20 MG/M2 ON DAYS 1, 8, AND 15 (EVERY 28 DAYS
     Route: 042
     Dates: start: 20081016, end: 20081016
  2. COUMADIN [Suspect]
     Dosage: ALTERNATING WITH 5 MG PO DAILY.
     Route: 048
  3. DIGOXIN [Suspect]
     Route: 048

REACTIONS (8)
  - CONFUSIONAL STATE [None]
  - HAEMATOMA [None]
  - HYPOTENSION [None]
  - MALIGNANT NEOPLASM PROGRESSION [None]
  - MUSCULAR WEAKNESS [None]
  - PULMONARY EMBOLISM [None]
  - SYNCOPE [None]
  - URETERIC OBSTRUCTION [None]
